FAERS Safety Report 8277418-2 (Version None)
Quarter: 2012Q2

REPORT INFORMATION
  Report Type: 
  Country: None (occurrence: None)
  Receive Date: 20120412
  Receipt Date: 20120405
  Transmission Date: 20120825
  Serious: Yes (Other)
  Sender: FDA-Public Use
  Company Number: BR-PFIZER INC-2012080288

PATIENT
  Sex: Female

DRUGS (4)
  1. TORISEL [Suspect]
     Indication: RENAL CANCER METASTATIC
     Dosage: UNK
     Route: 042
     Dates: start: 20111101
  2. TORISEL [Suspect]
     Dosage: UNK
     Dates: start: 20111201
  3. SUTENT [Suspect]
     Indication: RENAL CANCER METASTATIC
     Dosage: UNK
     Route: 048
     Dates: start: 20110801, end: 20110901
  4. TORISEL [Suspect]
     Dosage: UNK
     Route: 042
     Dates: start: 20120101, end: 20120201

REACTIONS (7)
  - ERYTHEMA [None]
  - OEDEMA PERIPHERAL [None]
  - PAIN IN EXTREMITY [None]
  - HYPERTENSION [None]
  - CARDIOTOXICITY [None]
  - LYMPHOEDEMA [None]
  - OEDEMA [None]
